FAERS Safety Report 16131059 (Version 1)
Quarter: 2019Q1

REPORT INFORMATION
  Report Type: Spontaneous
  Country: US (occurrence: US)
  Receive Date: 20190328
  Receipt Date: 20190328
  Transmission Date: 20190418
  Serious: Yes (Hospitalization)
  Sender: FDA-Public Use
  Company Number: US-SA-2019SA077516

PATIENT
  Sex: Male
  Weight: 104 kg

DRUGS (4)
  1. TAMSULOSIN HYDROCHLORIDE. [Suspect]
     Active Substance: TAMSULOSIN HYDROCHLORIDE
     Dosage: UNK, Q3D
     Route: 065
  2. TOVIAZ [Suspect]
     Active Substance: FESOTERODINE FUMARATE
     Indication: DYSURIA
     Dosage: 8 MG, QD, STARTED ON 2011 OR 2012,
     Route: 048
  3. TAMSULOSIN HYDROCHLORIDE. [Suspect]
     Active Substance: TAMSULOSIN HYDROCHLORIDE
     Indication: DYSURIA
     Dosage: UNK UNK, UNK,STARTED ON 2011 OR 2012, FREQUENCY-ONCE EVERY THIRD DAY
     Route: 065
     Dates: start: 2011
  4. TOVIAZ [Suspect]
     Active Substance: FESOTERODINE FUMARATE
     Dosage: 8 MG, QD
     Route: 048

REACTIONS (4)
  - Weight decreased [Recovered/Resolved]
  - Intentional product use issue [Unknown]
  - Pleurisy [Recovered/Resolved]
  - Inappropriate schedule of product administration [Unknown]
